FAERS Safety Report 8139996-3 (Version None)
Quarter: 2012Q1

REPORT INFORMATION
  Report Type: 
  Country: None (occurrence: None)
  Receive Date: 20120215
  Receipt Date: 20120209
  Transmission Date: 20120608
  Serious: Yes (Hospitalization, Other)
  Sender: FDA-Public Use
  Company Number: US-MERCK-1107USA03275

PATIENT
  Age: 75 Year
  Sex: Female
  Weight: 59 kg

DRUGS (5)
  1. FOSAMAX [Suspect]
     Indication: OSTEOPOROSIS PROPHYLAXIS
     Route: 048
     Dates: start: 20011101, end: 20060101
  2. FOSAMAX [Suspect]
     Indication: OSTEOPOROSIS
     Route: 048
     Dates: start: 20011101, end: 20060101
  3. VITAMINS (UNSPECIFIED) [Concomitant]
     Route: 065
     Dates: start: 20060101
  4. FOSAMAX PLUS D [Suspect]
     Indication: OSTEOPOROSIS
     Route: 048
     Dates: start: 20070801, end: 20090101
  5. ALENDRONATE SODIUM [Suspect]
     Route: 048
     Dates: start: 20080614

REACTIONS (41)
  - FEMUR FRACTURE [None]
  - CONFUSIONAL STATE [None]
  - SLOW SPEECH [None]
  - HEAD INJURY [None]
  - RENAL FAILURE ACUTE [None]
  - FRUSTRATION [None]
  - MYCOTIC ALLERGY [None]
  - INTERVERTEBRAL DISC DEGENERATION [None]
  - ARTHROPATHY [None]
  - SEASONAL ALLERGY [None]
  - CORONARY ARTERY DISEASE [None]
  - VOLVULUS [None]
  - CEREBRAL SMALL VESSEL ISCHAEMIC DISEASE [None]
  - OSTEOARTHRITIS [None]
  - PATELLOFEMORAL PAIN SYNDROME [None]
  - ANXIETY [None]
  - CONTUSION [None]
  - MEMORY IMPAIRMENT [None]
  - LOW TURNOVER OSTEOPATHY [None]
  - KYPHOSIS [None]
  - ASTHENIA [None]
  - RIB FRACTURE [None]
  - SCIATICA [None]
  - INFECTION [None]
  - POST HERPETIC NEURALGIA [None]
  - GAIT DISTURBANCE [None]
  - NASAL DRYNESS [None]
  - NASAL DISORDER [None]
  - HERPES ZOSTER [None]
  - OROPHARYNGEAL PAIN [None]
  - SCOLIOSIS [None]
  - FACET JOINT SYNDROME [None]
  - FALL [None]
  - SPONDYLOLISTHESIS [None]
  - RHINITIS PERENNIAL [None]
  - PAIN IN EXTREMITY [None]
  - OSTEOPOROSIS [None]
  - NASAL SEPTUM DEVIATION [None]
  - DRUG INEFFECTIVE [None]
  - IMPAIRED HEALING [None]
  - SPINAL COMPRESSION FRACTURE [None]
